FAERS Safety Report 7251700-X (Version None)
Quarter: 2011Q1

REPORT INFORMATION
  Report Type: 
  Country: None (occurrence: None)
  Receive Date: 20110128
  Receipt Date: 20110117
  Transmission Date: 20110831
  Serious: No
  Sender: FDA-Public Use
  Company Number: IT-ELI_LILLY_AND_COMPANY-IT200702004523

PATIENT
  Age: 80 Year
  Sex: Male

DRUGS (1)
  1. ZYPREXA [Suspect]
     Indication: PRESENILE DEMENTIA
     Dosage: 2.5 MG, DAILY (1/D)
     Route: 048

REACTIONS (2)
  - ERYTHEMA [None]
  - OFF LABEL USE [None]
